FAERS Safety Report 5827143-X (Version None)
Quarter: 2008Q3

REPORT INFORMATION
  Report Type: 
  Country: None (occurrence: None)
  Receive Date: 20080729
  Receipt Date: 20080729
  Transmission Date: 20090109
  Serious: Yes (Other)
  Sender: FDA-Public Use
  Company Number: None

PATIENT
  Sex: Female
  Weight: 56.6996 kg

DRUGS (1)
  1. BONIVA [Suspect]
     Indication: OSTEOPENIA
     Dosage: 1 TABLET MONTHLY PO
     Route: 048
     Dates: start: 20060701, end: 20070701

REACTIONS (5)
  - BACK PAIN [None]
  - BONE PAIN [None]
  - DYSPHAGIA [None]
  - MYALGIA [None]
  - PAIN [None]
